FAERS Safety Report 18118961 (Version 1)
Quarter: 2020Q3

REPORT INFORMATION
  Report Type: Spontaneous
  Country: CA (occurrence: CA)
  Receive Date: 20200806
  Receipt Date: 20200806
  Transmission Date: 20201103
  Serious: Yes (Other)
  Sender: FDA-Public Use
  Company Number: CA-SA-2020SA198739

PATIENT

DRUGS (1)
  1. LANTUS [Suspect]
     Active Substance: INSULIN GLARGINE
     Dosage: UNK
     Route: 065

REACTIONS (8)
  - Burning sensation [Unknown]
  - Hypertension [Unknown]
  - Dizziness [Unknown]
  - Blood glucose increased [Unknown]
  - Product storage error [Unknown]
  - Product use issue [Unknown]
  - Drug ineffective [Unknown]
  - Neuropathy peripheral [Unknown]
